FAERS Safety Report 15263230 (Version 3)
Quarter: 2019Q2

REPORT INFORMATION
  Report Type: Report from Study
  Country: IT (occurrence: IT)
  Receive Date: 20180810
  Receipt Date: 20190527
  Transmission Date: 20190711
  Serious: Yes (Other)
  Sender: FDA-Public Use
  Company Number: IT-ROCHE-2136503

PATIENT
  Age: 61 Year
  Sex: Female

DRUGS (2)
  1. RIVOTRIL [Suspect]
     Active Substance: CLONAZEPAM
     Indication: DRUG ABUSE
     Dosage: 2.5 MG/ML
     Route: 048
     Dates: start: 20180329, end: 20180329
  2. CITALOPRAM [Concomitant]
     Active Substance: CITALOPRAM HYDROBROMIDE
     Route: 048

REACTIONS (3)
  - Drug abuse [Unknown]
  - Confusional state [Unknown]
  - Disorientation [Unknown]

NARRATIVE: CASE EVENT DATE: 20180329
